FAERS Safety Report 25608667 (Version 2)
Quarter: 2025Q3

REPORT INFORMATION
  Report Type: Spontaneous
  Country: EU (occurrence: EU)
  Receive Date: 20250726
  Receipt Date: 20250804
  Transmission Date: 20251020
  Serious: Yes (Hospitalization)
  Sender: AUROBINDO
  Company Number: EU-AUROBINDO-AUR-APL-2025-037574

PATIENT
  Age: 40 Year
  Sex: Female

DRUGS (6)
  1. VENLAFAXINE [Suspect]
     Active Substance: VENLAFAXINE HYDROCHLORIDE
     Indication: Bipolar I disorder
     Route: 065
  2. FLUOXETINE [Suspect]
     Active Substance: FLUOXETINE HYDROCHLORIDE
     Indication: Bipolar I disorder
     Route: 065
  3. TRAZODONE [Suspect]
     Active Substance: TRAZODONE HYDROCHLORIDE
     Indication: Bipolar I disorder
     Route: 065
  4. LAMOTRIGINE [Concomitant]
     Active Substance: LAMOTRIGINE
     Indication: Bipolar I disorder
     Route: 065
  5. VALPROATE SODIUM [Concomitant]
     Active Substance: VALPROATE SODIUM
     Indication: Bipolar I disorder
     Route: 065
  6. KETAMINE [Concomitant]
     Active Substance: KETAMINE
     Indication: Mental status changes
     Route: 042

REACTIONS (1)
  - Drug ineffective [Unknown]
